FAERS Safety Report 8225421-0 (Version None)
Quarter: 2012Q1

REPORT INFORMATION
  Report Type: 
  Country: None (occurrence: None)
  Receive Date: 20120321
  Receipt Date: 20120308
  Transmission Date: 20120608
  Serious: Yes (Other)
  Sender: FDA-Public Use
  Company Number: CO-AMGEN-COLCT2011052668

PATIENT
  Age: 48 Year
  Sex: Female

DRUGS (7)
  1. AMOXICILLIN [Concomitant]
     Dosage: UNK
  2. CLARITHROMYCIN [Concomitant]
     Dosage: UNK
  3. CALCIUM CARBONATE [Concomitant]
     Dosage: UNK
  4. METHOTREXATE [Concomitant]
     Dosage: UNK
  5. PREDNISOLONE [Concomitant]
     Dosage: UNK
  6. PREDNISOLONE [Concomitant]
     Dosage: HALF A TABLET, DAILY
  7. ETANERCEPT [Suspect]
     Indication: RHEUMATOID ARTHRITIS
     Dosage: 50 MG, WEEKLY
     Route: 058
     Dates: start: 20110808

REACTIONS (5)
  - DRY MOUTH [None]
  - BLOOD GLUCOSE INCREASED [None]
  - SUBCUTANEOUS ABSCESS [None]
  - DIZZINESS [None]
  - GENITAL ABSCESS [None]
